FAERS Safety Report 5647725-8 (Version None)
Quarter: 2008Q2

REPORT INFORMATION
  Report Type: 
  Country: None (occurrence: None)
  Receive Date: 20080228
  Receipt Date: 20080218
  Transmission Date: 20081010
  Serious: Yes (Other)
  Sender: FDA-Public Use
  Company Number: 163-21880-06101389

PATIENT
  Age: 64 Year
  Sex: Female

DRUGS (3)
  1. REVLIMID [Suspect]
     Indication: MULTIPLE MYELOMA
     Dosage: 25 MG, X21 DAYS EVERY 28 DAYS, ORAL
     Route: 048
     Dates: start: 20061003
  2. REVLIMID [Suspect]
  3. PROZAC [Suspect]
     Indication: DRUG USE FOR UNKNOWN INDICATION
     Dates: start: 20060901, end: 20060101

REACTIONS (9)
  - CHILLS [None]
  - FEELING COLD [None]
  - HOT FLUSH [None]
  - NAUSEA [None]
  - PRURITUS [None]
  - PYREXIA [None]
  - RASH [None]
  - TREMOR [None]
  - VOMITING [None]
